FAERS Safety Report 7468127-8 (Version None)
Quarter: 2011Q2

REPORT INFORMATION
  Report Type: 
  Country: None (occurrence: None)
  Receive Date: 20110509
  Receipt Date: 20110428
  Transmission Date: 20111010
  Serious: Yes (Hospitalization, Other)
  Sender: FDA-Public Use
  Company Number: US-ELI_LILLY_AND_COMPANY-US201104007743

PATIENT
  Age: 42 Year
  Sex: Female

DRUGS (2)
  1. ILETIN [Suspect]
     Indication: DIABETES MELLITUS
     Dosage: UNK, UNKNOWN
  2. HUMALOG [Suspect]
     Indication: DIABETES MELLITUS
     Dosage: UNK, PRN
     Route: 058

REACTIONS (9)
  - INCOHERENT [None]
  - STRESS [None]
  - BLOOD GLUCOSE INCREASED [None]
  - DIABETIC KETOACIDOSIS [None]
  - MEMORY IMPAIRMENT [None]
  - BLOOD GLUCOSE DECREASED [None]
  - DRUG INEFFECTIVE [None]
  - CEREBROVASCULAR ACCIDENT [None]
  - INCORRECT STORAGE OF DRUG [None]
